FAERS Safety Report 25792602 (Version 2)
Quarter: 2025Q4

REPORT INFORMATION
  Report Type: Spontaneous
  Country: US (occurrence: US)
  Receive Date: 20250911
  Receipt Date: 20251027
  Transmission Date: 20260117
  Serious: No
  Sender: SANOFI AVENTIS
  Company Number: US-SA-2025SA270458

PATIENT
  Age: 59 Year
  Sex: Female

DRUGS (3)
  1. DUPIXENT [Suspect]
     Active Substance: DUPILUMAB
     Indication: Neurodermatitis
     Dosage: 600 MG, 1X
     Route: 058
     Dates: start: 202508, end: 202508
  2. DUPIXENT [Suspect]
     Active Substance: DUPILUMAB
     Dosage: 300 MG, QOW
     Route: 058
     Dates: start: 2025, end: 20250905
  3. NEMLUVIO [Concomitant]
     Active Substance: NEMOLIZUMAB-ILTO

REACTIONS (5)
  - Rash pruritic [Unknown]
  - Pain [Unknown]
  - Ocular hyperaemia [Unknown]
  - Eye pain [Unknown]
  - Wound [Unknown]

NARRATIVE: CASE EVENT DATE: 20250101
